FAERS Safety Report 6331679-5 (Version None)
Quarter: 2009Q3

REPORT INFORMATION
  Report Type: 
  Country: None (occurrence: None)
  Receive Date: 20090827
  Receipt Date: 20090805
  Transmission Date: 20100115
  Serious: Yes (Death)
  Sender: FDA-Public Use
  Company Number: PHEH2009US09632

PATIENT
  Age: 73 Year
  Sex: Female

DRUGS (3)
  1. TOBI [Suspect]
     Dosage: UNK
     Dates: start: 20080407, end: 20081216
  2. REVLIMID [Concomitant]
  3. PROCRIT                            /00909301/ [Concomitant]

REACTIONS (1)
  - DEATH [None]
